FAERS Safety Report 8099337-7 (Version None)
Quarter: 2012Q1

REPORT INFORMATION
  Report Type: 
  Country: None (occurrence: None)
  Receive Date: 20120126
  Receipt Date: 20120117
  Transmission Date: 20120608
  Serious: Yes (Hospitalization)
  Sender: FDA-Public Use
  Company Number: 1000027342

PATIENT
  Age: 31 Year
  Sex: Female

DRUGS (2)
  1. FOSFOMYCIN (FOSFOMYCIN TROMETAMOL) (3 GRAM, GRANULATE) [Suspect]
     Indication: URINARY TRACT INFECTION
     Dosage: 3 G, ONCE, ORAL
     Route: 048
     Dates: start: 20120113, end: 20120113
  2. ACETAMINOPHEN [Suspect]
     Indication: URINARY TRACT INFECTION
     Dosage: 1 GRAM, ONCE, ORAL
     Route: 048
     Dates: start: 20120113, end: 20120113

REACTIONS (3)
  - MALAISE [None]
  - AGITATION [None]
  - PARAESTHESIA [None]
